FAERS Safety Report 20818950 (Version 1)
Quarter: 2022Q2

REPORT INFORMATION
  Report Type: Spontaneous
  Country: US (occurrence: None)
  Receive Date: 20220511
  Receipt Date: 20220511
  Transmission Date: 20220721
  Serious: Yes (Other)
  Sender: FDA-Public Use
  Company Number: None

PATIENT

DRUGS (1)
  1. SUBOXONE [Suspect]
     Active Substance: BUPRENORPHINE HYDROCHLORIDE\NALOXONE HYDROCHLORIDE

REACTIONS (5)
  - Urticaria [None]
  - Pruritus [None]
  - Burning sensation [None]
  - Oral discomfort [None]
  - Hyperhidrosis [None]

NARRATIVE: CASE EVENT DATE: 20220511
